FAERS Safety Report 12278159 (Version 6)
Quarter: 2018Q3

REPORT INFORMATION
  Report Type: Report from Study
  Country: US (occurrence: US)
  Receive Date: 20160418
  Receipt Date: 20180824
  Transmission Date: 20181010
  Serious: Yes (Other)
  Sender: FDA-Public Use
  Company Number: PHHY2015US005719

PATIENT
  Age: 46 Year
  Sex: Female

DRUGS (2)
  1. INFLUENZA VACCINE [Concomitant]
     Active Substance: INFLUENZA VIRUS VACCINE
     Indication: IMMUNISATION
     Dosage: UNK
     Route: 065
     Dates: start: 20151013, end: 20151013
  2. GILENYA [Suspect]
     Active Substance: FINGOLIMOD HYDROCHLORIDE
     Indication: MULTIPLE SCLEROSIS
     Dosage: UNK, QD
     Route: 048

REACTIONS (11)
  - Alanine aminotransferase increased [Unknown]
  - Herpes zoster [Unknown]
  - Bradycardia [Unknown]
  - Blood potassium decreased [Unknown]
  - Micturition urgency [Recovered/Resolved]
  - Lymphocyte count decreased [Unknown]
  - Vertigo [Recovered/Resolved]
  - Blood pressure increased [Unknown]
  - Urinary retention [Unknown]
  - Blood sodium decreased [Unknown]
  - Urinary hesitation [Recovered/Resolved]

NARRATIVE: CASE EVENT DATE: 20121002
